FAERS Safety Report 15433384 (Version 3)
Quarter: 2018Q4

REPORT INFORMATION
  Report Type: Report from Study
  Country: NL (occurrence: NL)
  Receive Date: 20180927
  Receipt Date: 20181126
  Transmission Date: 20190204
  Serious: Yes (Hospitalization, Other)
  Sender: FDA-Public Use
  Company Number: NL-AMGEN-NLDSL2018132202

PATIENT
  Age: 85 Year
  Sex: Male

DRUGS (2)
  1. XGEVA [Suspect]
     Active Substance: DENOSUMAB
     Indication: PROPHYLAXIS
     Dosage: 120 MG, Q4WK
     Route: 058
     Dates: start: 201710, end: 201810
  2. XGEVA [Suspect]
     Active Substance: DENOSUMAB
     Dosage: UNK
     Route: 058

REACTIONS (4)
  - Osteonecrosis of jaw [Unknown]
  - Jaw disorder [Unknown]
  - Fall [Not Recovered/Not Resolved]
  - Dislocation of vertebra [Not Recovered/Not Resolved]

NARRATIVE: CASE EVENT DATE: 2017
